FAERS Safety Report 9250043 (Version 1)
Quarter: 2013Q2

REPORT INFORMATION
  Report Type: Spontaneous
  Country: US (occurrence: US)
  Receive Date: 20130424
  Receipt Date: 20130424
  Transmission Date: 20140414
  Serious: Yes (Other)
  Sender: FDA-Public Use
  Company Number: US-BIOGENIDEC-2013BI036023

PATIENT
  Age: 64 Year
  Sex: Female

DRUGS (8)
  1. TYSABRI [Suspect]
     Indication: PRODUCT USED FOR UNKNOWN INDICATION
  2. AMPYRA [Concomitant]
     Indication: MULTIPLE SCLEROSIS
     Dates: start: 2010
  3. BONIVA (IBANDRONATE SODIUM) [Concomitant]
  4. PAXIL (PAROXETINE HYDROCHLORIDE) [Concomitant]
  5. BACLOFEN (BACLOFEN) [Concomitant]
  6. VITAMIN D (ERGOCALCIFEROL) [Concomitant]
  7. LIPITOR (ATORVASTATIN CALCIUM) [Concomitant]
  8. COREG (CARVEDILOL) [Concomitant]

REACTIONS (1)
  - Deep vein thrombosis [Recovered/Resolved]
